FAERS Safety Report 17387216 (Version 1)
Quarter: 2020Q1

REPORT INFORMATION
  Report Type: Report from Study
  Country: US (occurrence: US)
  Receive Date: 20200206
  Receipt Date: 20200206
  Transmission Date: 20200409
  Serious: Yes (Hospitalization)
  Sender: FDA-Public Use
  Company Number: US-ALNYLAM PHARMACEUTICALS, INC.-ALN-2019-000898

PATIENT
  Age: 49 Year
  Sex: Female

DRUGS (1)
  1. ONPATTRO [Suspect]
     Active Substance: PATISIRAN SODIUM
     Indication: HEREDITARY NEUROPATHIC AMYLOIDOSIS
     Dosage: UNK, Q3W
     Route: 042
     Dates: start: 20191014

REACTIONS (11)
  - Hypersensitivity [Recovered/Resolved]
  - Dyspnoea [Recovered/Resolved]
  - Incoherent [Recovered/Resolved]
  - Paraesthesia [Unknown]
  - Paraesthesia oral [Recovered/Resolved]
  - Medication error [Unknown]
  - Presyncope [Recovered/Resolved]
  - Hypersensitivity [Unknown]
  - Abdominal pain upper [Unknown]
  - Pharyngeal swelling [Unknown]
  - Lip swelling [Unknown]

NARRATIVE: CASE EVENT DATE: 20191105
